FAERS Safety Report 8186971-9 (Version None)
Quarter: 2012Q1

REPORT INFORMATION
  Report Type: 
  Country: None (occurrence: None)
  Receive Date: 20120306
  Receipt Date: 20120301
  Transmission Date: 20120608
  Serious: Yes (Hospitalization)
  Sender: FDA-Public Use
  Company Number: US-PFIZER INC-2012055942

PATIENT
  Age: 81 Year
  Sex: Female

DRUGS (2)
  1. PREMARIN [Suspect]
     Dosage: TWO TO THREE TIMES A WEEK
     Route: 061
     Dates: start: 20111001
  2. MORPHINE SULFATE [Suspect]
     Dosage: UNK

REACTIONS (2)
  - VAGUS NERVE DISORDER [None]
  - SYNCOPE [None]
